FAERS Safety Report 7331671-8 (Version None)
Quarter: 2011Q1

REPORT INFORMATION
  Report Type: 
  Country: None (occurrence: None)
  Receive Date: 20110228
  Receipt Date: 20110228
  Transmission Date: 20110831
  Serious: Yes (Life-Threatening)
  Sender: FDA-Public Use
  Company Number: None

PATIENT
  Age: 59 Year
  Sex: Male
  Weight: 78.0187 kg

DRUGS (1)
  1. TACROLIMUS [Suspect]
     Indication: GRAFT VERSUS HOST DISEASE
     Dosage: 0.5 2X/ DAY PO
     Route: 048
     Dates: start: 20110210, end: 20110226

REACTIONS (7)
  - PRURITUS [None]
  - BLOOD ALKALINE PHOSPHATASE INCREASED [None]
  - PRODUCT SUBSTITUTION ISSUE [None]
  - ASPARTATE AMINOTRANSFERASE INCREASED [None]
  - ALANINE AMINOTRANSFERASE INCREASED [None]
  - DRUG INEFFECTIVE [None]
  - GRAFT VERSUS HOST DISEASE [None]
